FAERS Safety Report 25303899 (Version 2)
Quarter: 2025Q2

REPORT INFORMATION
  Report Type: Spontaneous
  Country: CN (occurrence: CN)
  Receive Date: 20250513
  Receipt Date: 20250510
  Transmission Date: 20250717
  Serious: Yes (Other)
  Sender: NOVO NORDISK
  Company Number: CN-NOVOPROD-1415673

PATIENT
  Age: 37 Year
  Sex: Male
  Weight: 80 kg

DRUGS (2)
  1. OZEMPIC [Suspect]
     Active Substance: SEMAGLUTIDE
     Indication: Weight control
     Dates: start: 202309, end: 202311
  2. OZEMPIC [Suspect]
     Active Substance: SEMAGLUTIDE
     Dates: start: 20250326

REACTIONS (13)
  - Oesophagogastroscopy [Unknown]
  - Anxiety [Unknown]
  - Agitation [Unknown]
  - Sluggishness [Unknown]
  - Hunger [Not Recovered/Not Resolved]
  - Hypoglycaemia [Unknown]
  - Sexual dysfunction [Unknown]
  - Nasopharyngitis [Not Recovered/Not Resolved]
  - Visual impairment [Unknown]
  - Injection site haemorrhage [Unknown]
  - Suspected product quality issue [Unknown]
  - Incorrect dose administered [Unknown]
  - Off label use [Recovered/Resolved]

NARRATIVE: CASE EVENT DATE: 20230901
